FAERS Safety Report 4404164-5 (Version None)
Quarter: 2004Q3

REPORT INFORMATION
  Report Type: 
  Country: None (occurrence: None)
  Receive Date: 20040721
  Receipt Date: 20040721
  Transmission Date: 20050211
  Serious: Yes (Hospitalization)
  Sender: FDA-Public Use
  Company Number: None

PATIENT
  Age: 82 Year
  Sex: Male
  Weight: 69.4 kg

DRUGS (16)
  1. LANOXIN [Suspect]
     Indication: ATRIAL FIBRILLATION
  2. LANOXIN [Suspect]
     Indication: CARDIAC FAILURE CONGESTIVE
  3. LISINOPRIL [Concomitant]
  4. MEGESTROL ACETATE [Concomitant]
  5. METOLAZONE [Concomitant]
  6. AMIODARONE HCL [Concomitant]
  7. GLIPIZIDE [Concomitant]
  8. SPIRONOLACTONE [Concomitant]
  9. ASPIRIN [Concomitant]
  10. CALCIUM [Concomitant]
  11. DIGOXIN [Concomitant]
  12. FUROSEMIDE [Concomitant]
  13. LEVOTHYROXINE SODIUM [Concomitant]
  14. NITROGLYCERIN [Concomitant]
  15. RABEPRAZOLE NA [Concomitant]
  16. SIMVASTATIN [Concomitant]

REACTIONS (1)
  - THERAPEUTIC AGENT TOXICITY [None]
